FAERS Safety Report 5720166-0 (Version None)
Quarter: 2008Q2

REPORT INFORMATION
  Report Type: 
  Country: None (occurrence: None)
  Receive Date: 20080428
  Receipt Date: 20070809
  Transmission Date: 20081010
  Serious: No
  Sender: FDA-Public Use
  Company Number: US-AMGEN-US238134

PATIENT
  Sex: Female

DRUGS (4)
  1. SENSIPAR [Suspect]
     Indication: DRUG USE FOR UNKNOWN INDICATION
     Route: 065
     Dates: start: 20060525
  2. CYMBALTA [Concomitant]
     Route: 065
  3. VICODIN [Concomitant]
     Route: 065
  4. XANAX [Concomitant]
     Route: 065

REACTIONS (3)
  - BLOOD CALCIUM DECREASED [None]
  - DYSURIA [None]
  - POLLAKIURIA [None]
